FAERS Safety Report 5657019-2 (Version None)
Quarter: 2008Q1

REPORT INFORMATION
  Report Type: 
  Country: None (occurrence: None)
  Receive Date: 20080310
  Receipt Date: 20080305
  Transmission Date: 20080703
  Serious: Yes (Other)
  Sender: FDA-Public Use
  Company Number: GB-ASTRAZENECA-2007GB02482

PATIENT
  Age: 19 Year
  Sex: Female
  Weight: 60 kg

DRUGS (1)
  1. MARCAINE [Suspect]
     Indication: EPIDURAL ANAESTHESIA
     Route: 008
     Dates: start: 20071128, end: 20071128

REACTIONS (2)
  - CONVULSION [None]
  - PRE-ECLAMPSIA [None]
